FAERS Safety Report 5038489-X (Version None)
Quarter: 2006Q2

REPORT INFORMATION
  Report Type: 
  Country: None (occurrence: None)
  Receive Date: 20060601
  Receipt Date: 20060123
  Transmission Date: 20061013
  Serious: No
  Sender: FDA-Public Use
  Company Number: 2006PV007494

PATIENT
  Age: 69 Year
  Sex: Female
  Weight: 62.1428 kg

DRUGS (7)
  1. BYETTA [Suspect]
     Indication: DIABETES MELLITUS NON-INSULIN-DEPENDENT
     Dosage: 5 MCG;BID;SC
     Route: 058
     Dates: start: 20060120
  2. GLYBURIDE AND METFORMIN HCL [Concomitant]
  3. METFORMIN HYDROCHLORIDE [Concomitant]
  4. EVISTA [Concomitant]
  5. LIPITOR [Concomitant]
  6. ZETIA [Concomitant]
  7. DIOVAN [Concomitant]

REACTIONS (2)
  - HEADACHE [None]
  - NERVOUSNESS [None]
